FAERS Safety Report 17127682 (Version 2)
Quarter: 2019Q4

REPORT INFORMATION
  Report Type: Spontaneous
  Country: US (occurrence: US)
  Receive Date: 20191209
  Receipt Date: 20191209
  Transmission Date: 20200122
  Serious: Yes (Hospitalization, Other)
  Sender: FDA-Public Use
  Company Number: US-ALKEM LABORATORIES LIMITED-US-ALKEM-2019-10648

PATIENT
  Age: 52 Year
  Sex: Female

DRUGS (6)
  1. GABAPENTIN. [Concomitant]
     Active Substance: GABAPENTIN
     Indication: PRODUCT USED FOR UNKNOWN INDICATION
     Dosage: 600 MILLIGRAM
     Route: 065
  2. LIDOCAINE. [Suspect]
     Active Substance: LIDOCAINE
     Indication: HEADACHE
     Dosage: 1 MG/MIN
     Route: 042
  3. LIDOCAINE. [Suspect]
     Active Substance: LIDOCAINE
     Dosage: 2 MG/MIN
     Route: 042
  4. SERTRALINE [Suspect]
     Active Substance: SERTRALINE HYDROCHLORIDE
     Indication: DEPRESSION
     Dosage: 200 MILLIGRAM, OD
     Route: 065
  5. TRAZODONE [Suspect]
     Active Substance: TRAZODONE HYDROCHLORIDE
     Indication: DEPRESSION
     Dosage: 200 MILLIGRAM, OD
     Route: 065
  6. METFORMIN [Concomitant]
     Active Substance: METFORMIN HYDROCHLORIDE
     Indication: PRODUCT USED FOR UNKNOWN INDICATION
     Dosage: 1000 MILLIGRAM, OD
     Route: 065

REACTIONS (9)
  - Nausea [Recovering/Resolving]
  - Drug interaction [Unknown]
  - Toxicity to various agents [Unknown]
  - Balance disorder [Recovering/Resolving]
  - Nystagmus [Recovering/Resolving]
  - Cardiac arrest [Recovering/Resolving]
  - Bradycardia [Recovering/Resolving]
  - Dizziness [Recovering/Resolving]
  - Syncope [Recovering/Resolving]
